FAERS Safety Report 9690465 (Version 4)
Quarter: 2013Q4

REPORT INFORMATION
  Report Type: Spontaneous
  Country: US (occurrence: US)
  Receive Date: 20131115
  Receipt Date: 20131219
  Transmission Date: 20140711
  Serious: No
  Sender: FDA-Public Use
  Company Number: US-PFIZER INC-2013327275

PATIENT
  Age: 53 Year
  Sex: Female
  Weight: 55.33 kg

DRUGS (7)
  1. LYRICA [Suspect]
     Indication: NECK PAIN
     Dosage: 150 MG, 3X/DAY
     Dates: end: 201311
  2. LYRICA [Suspect]
     Indication: BACK PAIN
     Dosage: 150 MG, 3X/DAY
     Dates: start: 20130819
  3. LYRICA [Suspect]
     Indication: BURNING SENSATION
     Dosage: 75 MG, 3X/DAY
     Dates: end: 201311
  4. CELEXA [Suspect]
     Indication: PAIN
     Dosage: 20 MG, DAILY
  5. AMITRIPTYLINE [Concomitant]
     Dosage: 25 MG, DAILY
  6. HYDROCODONE/APAP [Concomitant]
     Dosage: 5/325MG, 4X/DAY (5MG HYDROCODONE / 325MG APAP)
  7. AMBIEN [Concomitant]
     Dosage: UNK

REACTIONS (3)
  - Withdrawal syndrome [Unknown]
  - Malaise [Unknown]
  - Irritability [Unknown]
